FAERS Safety Report 15921045 (Version 1)
Quarter: 2019Q1

REPORT INFORMATION
  Report Type: Spontaneous
  Country: US (occurrence: US)
  Receive Date: 20190205
  Receipt Date: 20190205
  Transmission Date: 20190417
  Serious: No
  Sender: FDA-Public Use
  Company Number: US-GALDERMA-US18015911

PATIENT
  Age: 43 Year
  Sex: Female

DRUGS (1)
  1. SOOLANTRA [Suspect]
     Active Substance: IVERMECTIN
     Indication: ROSACEA
     Dosage: 1%
     Route: 061
     Dates: start: 20180611, end: 20180614

REACTIONS (3)
  - Erythema [Recovering/Resolving]
  - Skin burning sensation [Not Recovered/Not Resolved]
  - Rosacea [Recovering/Resolving]

NARRATIVE: CASE EVENT DATE: 20180612
